FAERS Safety Report 11693659 (Version 1)
Quarter: 2015Q4

REPORT INFORMATION
  Report Type: Spontaneous
  Country: US (occurrence: US)
  Receive Date: 20151103
  Receipt Date: 20151103
  Transmission Date: 20160304
  Serious: Yes (Death, Hospitalization)
  Sender: FDA-Public Use
  Company Number: US-PFIZER INC-2015368427

PATIENT
  Age: 90 Year
  Sex: Male
  Weight: 64 kg

DRUGS (1)
  1. REVATIO [Suspect]
     Active Substance: SILDENAFIL CITRATE
     Dosage: 20 MG, 3X/DAY

REACTIONS (4)
  - Cardiac failure [Fatal]
  - Heart rate decreased [Unknown]
  - Renal failure [Unknown]
  - Fluid retention [Unknown]

NARRATIVE: CASE EVENT DATE: 201509
